FAERS Safety Report 12206601 (Version 1)
Quarter: 2016Q1

REPORT INFORMATION
  Report Type: Spontaneous
  Country: US (occurrence: None)
  Receive Date: 20160323
  Receipt Date: 20160323
  Transmission Date: 20160526
  Serious: Yes (Other)
  Sender: FDA-Public Use
  Company Number: None

PATIENT
  Age: 47 Year
  Sex: Female
  Weight: 47.63 kg

DRUGS (6)
  1. BUDESONIDE EC [Concomitant]
     Active Substance: BUDESONIDE
  2. LUTEIN [Concomitant]
     Active Substance: LUTEIN
  3. MILK THISTLE WITH TURMERIC [Concomitant]
  4. VITAMIN D3 [Concomitant]
     Active Substance: CHOLECALCIFEROL
  5. L-GLUTAMINE /00503401/ [Concomitant]
     Active Substance: GLUTAMINE
  6. LIALDA [Suspect]
     Active Substance: MESALAMINE
     Indication: COLITIS ULCERATIVE
     Route: 048
     Dates: start: 20140331, end: 20160203

REACTIONS (2)
  - Rash pruritic [None]
  - Rash erythematous [None]

NARRATIVE: CASE EVENT DATE: 20160112
